FAERS Safety Report 15765236 (Version 1)
Quarter: 2018Q4

REPORT INFORMATION
  Report Type: Spontaneous
  Country: FR (occurrence: FR)
  Receive Date: 20181227
  Receipt Date: 20181227
  Transmission Date: 20190205
  Serious: Yes (Hospitalization)
  Sender: FDA-Public Use
  Company Number: FR-SAKK-2018SA344225AA

PATIENT
  Age: 59 Year
  Sex: Female
  Weight: 48 kg

DRUGS (5)
  1. TRAMADOL HYDROCHLORIDE. [Concomitant]
     Active Substance: TRAMADOL HYDROCHLORIDE
     Indication: PAIN
     Dosage: 150 MG, UNK, SB
     Route: 048
  2. TAXOTERE [Suspect]
     Active Substance: DOCETAXEL
     Dosage: 113 MG, QCY,75 MG/M? : 113 MG
     Route: 042
     Dates: start: 20181107, end: 20181107
  3. PARACETAMOL [Concomitant]
     Active Substance: ACETAMINOPHEN
     Indication: PAIN
     Dosage: UNK UNK, UNK, 1G SB
     Route: 048
  4. TAXOTERE [Suspect]
     Active Substance: DOCETAXEL
     Indication: BREAST CANCER
     Dosage: 113 MG, QCY,75 MG/M? : 113 MG
     Route: 042
     Dates: start: 20180926, end: 20180926
  5. ZOLPIDEM [Concomitant]
     Active Substance: ZOLPIDEM\ZOLPIDEM TARTRATE
     Indication: INSOMNIA
     Dosage: 10 MG, QD, 0-0-1
     Route: 048

REACTIONS (6)
  - Eosinopenia [Recovering/Resolving]
  - Anaemia [Recovering/Resolving]
  - Lymphopenia [Recovering/Resolving]
  - Monocytopenia [Recovering/Resolving]
  - Febrile neutropenia [Recovering/Resolving]
  - Leukopenia [Recovering/Resolving]

NARRATIVE: CASE EVENT DATE: 20181105
